FAERS Safety Report 7282483-5 (Version None)
Quarter: 2011Q1

REPORT INFORMATION
  Report Type: 
  Country: None (occurrence: None)
  Receive Date: 20110209
  Receipt Date: 20110204
  Transmission Date: 20110831
  Serious: Yes (Hospitalization, Disabling)
  Sender: FDA-Public Use
  Company Number: GB-TEVA-239535ISR

PATIENT
  Sex: Male
  Weight: 106.6 kg

DRUGS (9)
  1. GLUCOSAMINE [Concomitant]
     Indication: NUTRITIONAL SUPPORT
     Route: 048
     Dates: start: 20040101
  2. CANDESARTAN CILEXETIL [Concomitant]
     Route: 048
     Dates: start: 20070613
  3. QUININE [Concomitant]
     Indication: MUSCLE RELAXANT THERAPY
     Route: 048
     Dates: start: 20080715
  4. ABIRATERONE ACETATE/PLACEBO - BLINDED [Suspect]
     Indication: PROSTATE CANCER METASTATIC
     Route: 048
     Dates: end: 20100709
  5. FISH OIL, HYDROGENATED [Concomitant]
     Indication: NUTRITIONAL SUPPORT
     Route: 048
     Dates: start: 20040101
  6. ALLIUM SATIVUM [Concomitant]
     Indication: MEDICAL DIET
     Route: 048
     Dates: start: 20081001
  7. PREDNISOLONE [Suspect]
     Indication: PROSTATE CANCER METASTATIC
     Route: 048
  8. MOXONIDINE [Concomitant]
     Indication: HYPERTENSION
     Route: 048
     Dates: start: 20070226
  9. VENLAFAXINE [Concomitant]
     Indication: NIGHT SWEATS
     Route: 048
     Dates: start: 20091222

REACTIONS (1)
  - RENAL COLIC [None]
